FAERS Safety Report 5085218-X (Version None)
Quarter: 2006Q3

REPORT INFORMATION
  Report Type: 
  Country: None (occurrence: None)
  Receive Date: 20060822
  Receipt Date: 20060815
  Transmission Date: 20061208
  Serious: Yes (Other)
  Sender: FDA-Public Use
  Company Number: GB-JNJFOC-20060800957

PATIENT
  Sex: Male
  Weight: 110 kg

DRUGS (8)
  1. REMICADE [Suspect]
     Indication: DRUG USE FOR UNKNOWN INDICATION
     Route: 042
  2. ASACOL [Concomitant]
     Route: 065
  3. AZATHIOPRINE [Concomitant]
     Route: 065
  4. CIPROFLOXACIN [Concomitant]
     Route: 065
  5. LANSOPRAZOLE [Concomitant]
     Route: 065
  6. FLUOXETINE [Concomitant]
     Route: 065
  7. BUSCOPAN [Concomitant]
     Route: 065
  8. MILPAR [Concomitant]
     Route: 065

REACTIONS (2)
  - GAMMA-GLUTAMYLTRANSFERASE INCREASED [None]
  - MULTIPLE DRUG OVERDOSE [None]
